FAERS Safety Report 25455374 (Version 1)
Quarter: 2025Q2

REPORT INFORMATION
  Report Type: Spontaneous
  Country: GB (occurrence: GB)
  Receive Date: 20250619
  Receipt Date: 20250619
  Transmission Date: 20250717
  Serious: Yes (Other)
  Sender: HIKMA
  Company Number: GB-MHRA-EMIS-10689-9fa11f91-b9f0-4f34-8ff5-9e163ebcd87f

PATIENT
  Age: 70 Year
  Sex: Male
  Weight: 100 kg

DRUGS (7)
  1. CIPROFLOXACIN [Suspect]
     Active Substance: CIPROFLOXACIN
     Indication: Product used for unknown indication
     Dosage: 1 DOSAGE FORM, Q12H (BASED ON SENSITIVITIES ON CULTURE RESULTS)
     Route: 065
     Dates: start: 20250328, end: 20250402
  2. BETAMETHASONE [Concomitant]
     Active Substance: BETAMETHASONE
     Indication: Product used for unknown indication
     Dosage: 100 GRAM, QD (APPLY THINLY)
     Route: 065
     Dates: start: 20250115, end: 20250329
  3. BRICANYL [Concomitant]
     Active Substance: TERBUTALINE SULFATE
     Indication: Asthma
     Dosage: 1 DOSAGE FORM, Q6H
     Route: 065
     Dates: start: 20250115
  4. AMOXICILLIN\CLAVULANATE POTASSIUM [Concomitant]
     Active Substance: AMOXICILLIN\CLAVULANATE POTASSIUM
     Indication: Product used for unknown indication
     Dosage: 1 DOSAGE FORM, Q8H (HIGH DOSE AS RECOMMENDED BY MICROBIOLOGY FOR 7 DAYS)
     Route: 065
     Dates: start: 20250309
  5. RAMIPRIL [Concomitant]
     Active Substance: RAMIPRIL
     Indication: Cardiac failure
     Dosage: 1 DOSAGE FORM, QD
     Route: 065
     Dates: start: 20250228, end: 20250402
  6. ALBUTEROL [Concomitant]
     Active Substance: ALBUTEROL
     Indication: Product used for unknown indication
     Route: 065
     Dates: start: 20250114, end: 20250131
  7. STERI-NEB SALINE [Concomitant]
     Indication: Cardiac failure congestive
     Route: 065
     Dates: start: 20250131

REACTIONS (2)
  - Fear of death [Not Recovered/Not Resolved]
  - Bronchiectasis [Unknown]

NARRATIVE: CASE EVENT DATE: 20250328
